FAERS Safety Report 7928595-1 (Version None)
Quarter: 2011Q4

REPORT INFORMATION
  Report Type: 
  Country: None (occurrence: None)
  Receive Date: 20111118
  Receipt Date: 20111111
  Transmission Date: 20120403
  Serious: Yes (Other)
  Sender: FDA-Public Use
  Company Number: PHHY2011JP097187

PATIENT
  Age: 52 Year
  Sex: Female

DRUGS (2)
  1. AMANTADINE HCL [Suspect]
     Indication: ALTERED STATE OF CONSCIOUSNESS
     Dosage: 50 MG, DAILY
  2. FLUVOXAMINE MALEATE [Interacting]
     Indication: DEPRESSION
     Dosage: 50 MG, DAILY

REACTIONS (7)
  - HYPERHIDROSIS [None]
  - CLONUS [None]
  - DRUG INTERACTION [None]
  - DIARRHOEA [None]
  - BLOOD CREATININE INCREASED [None]
  - SEROTONIN SYNDROME [None]
  - DEHYDRATION [None]
